FAERS Safety Report 7025037-8 (Version None)
Quarter: 2010Q4

REPORT INFORMATION
  Report Type: 
  Country: None (occurrence: None)
  Receive Date: 20101001
  Receipt Date: 20100921
  Transmission Date: 20110411
  Serious: Yes (Other)
  Sender: FDA-Public Use
  Company Number: US-PFIZER INC-2010124714

PATIENT
  Sex: Male
  Weight: 97.506 kg

DRUGS (9)
  1. GABAPENTIN [Suspect]
     Dosage: UNK
     Route: 048
  2. TIAZAC [Concomitant]
     Indication: CARDIAC DISORDER
     Dosage: 240 MG, DAILY
  3. GLUCOVANCE [Concomitant]
     Indication: DIABETES MELLITUS
     Dosage: 2.5/500 MG, DAILY
  4. ACTOS [Concomitant]
     Indication: DIABETES MELLITUS
     Dosage: 30 MG, DAILY
  5. WARFARIN SODIUM [Concomitant]
     Indication: ANTICOAGULANT THERAPY
     Dosage: UNK
  6. PACERONE [Concomitant]
     Indication: ATRIAL FIBRILLATION
     Dosage: 100 MG, DAILY
  7. BENICAR [Concomitant]
     Indication: CARDIAC DISORDER
     Dosage: 40/25 MG
     Route: 048
  8. GLYBURIDE [Concomitant]
     Dosage: UNK
  9. TRAMADOL [Concomitant]
     Dosage: UNK

REACTIONS (3)
  - COGNITIVE DISORDER [None]
  - DIZZINESS [None]
  - SEDATION [None]
